FAERS Safety Report 10306106 (Version 3)
Quarter: 2014Q4

REPORT INFORMATION
  Report Type: Spontaneous
  Country: CA (occurrence: None)
  Receive Date: 20140711
  Receipt Date: 20141015
  Transmission Date: 20150528
  Serious: Yes (Other)
  Sender: FDA-Public Use
  Company Number: 2014-002000

PATIENT
  Age: 66 Year
  Sex: Female
  Weight: 84 kg

DRUGS (1)
  1. ACTONEL [Suspect]
     Active Substance: RISEDRONATE SODIUM
     Dosage: 35 MG, ONCE ONLY, ORAL
     Route: 048
     Dates: start: 20130310, end: 20130310

REACTIONS (8)
  - Cough [None]
  - Retching [None]
  - Oesophageal disorder [None]
  - Ear congestion [None]
  - Dysphonia [None]
  - Oropharyngeal swelling [None]
  - Choking [None]
  - Local swelling [None]

NARRATIVE: CASE EVENT DATE: 20130313
